FAERS Safety Report 15473780 (Version 4)
Quarter: 2018Q4

REPORT INFORMATION
  Report Type: Spontaneous
  Country: CN (occurrence: CN)
  Receive Date: 20181008
  Receipt Date: 20181122
  Transmission Date: 20190205
  Serious: Yes (Hospitalization)
  Sender: FDA-Public Use
  Company Number: CN-GLAXOSMITHKLINE-CN2018GSK178136

PATIENT
  Age: 7 Year
  Sex: Male
  Weight: 21 kg

DRUGS (3)
  1. FLIXOTIDE [Suspect]
     Active Substance: FLUTICASONE PROPIONATE
     Dosage: UNK, (60 PUFFS)
     Route: 055
  2. SINGULAIR [Suspect]
     Active Substance: MONTELUKAST SODIUM
     Indication: RHINITIS ALLERGIC
     Dosage: 1 DF(TABLET), QD (4MG)
     Route: 048
  3. FLIXOTIDE [Suspect]
     Active Substance: FLUTICASONE PROPIONATE
     Indication: ASTHMA
     Dosage: (60 PUFFS)
     Route: 055

REACTIONS (5)
  - Asthma [Recovered/Resolved]
  - Overdose [Unknown]
  - Product dose omission [Unknown]
  - Product use issue [Unknown]
  - Product complaint [Unknown]

NARRATIVE: CASE EVENT DATE: 20181015
